FAERS Safety Report 22890772 (Version 3)
Quarter: 2023Q4

REPORT INFORMATION
  Report Type: Report from Study
  Country: US (occurrence: US)
  Receive Date: 20230901
  Receipt Date: 20231011
  Transmission Date: 20240110
  Serious: No
  Sender: FDA-Public Use
  Company Number: US-BoehringerIngelheim-2023-BI-258013

PATIENT
  Sex: Female

DRUGS (5)
  1. OFEV [Suspect]
     Active Substance: NINTEDANIB
     Indication: Product used for unknown indication
  2. AMBRISENTAN [Suspect]
     Active Substance: AMBRISENTAN
     Indication: Pulmonary arterial hypertension
     Dates: start: 20220524
  3. AMBRISENTAN [Suspect]
     Active Substance: AMBRISENTAN
     Indication: Pulmonary arterial hypertension
     Dates: start: 20220524
  4. TYVASO [Suspect]
     Active Substance: TREPROSTINIL
     Indication: Product used for unknown indication
  5. TADALAFIL [Concomitant]
     Active Substance: TADALAFIL
     Indication: Product used for unknown indication

REACTIONS (10)
  - Nausea [Unknown]
  - Dyspnoea [Not Recovered/Not Resolved]
  - Abdominal discomfort [Unknown]
  - Flatulence [Unknown]
  - Cough [Not Recovered/Not Resolved]
  - Skin irritation [Unknown]
  - Diarrhoea [Recovering/Resolving]
  - Fluid retention [Not Recovered/Not Resolved]
  - Gastrointestinal disorder [Unknown]
  - Gastrointestinal sounds abnormal [Not Recovered/Not Resolved]
